FAERS Safety Report 9634926 (Version 1)
Quarter: 2013Q4

REPORT INFORMATION
  Report Type: Spontaneous
  Country: US (occurrence: US)
  Receive Date: 20131021
  Receipt Date: 20131021
  Transmission Date: 20140711
  Serious: No
  Sender: FDA-Public Use
  Company Number: US-PURDUE-USA-2013-0101856

PATIENT
  Age: 24 Year
  Sex: Male

DRUGS (2)
  1. BUTRANS [Suspect]
     Indication: RHEUMATOID ARTHRITIS
     Dosage: 5 MCG/HR, WEEKLY
     Route: 062
     Dates: start: 201302
  2. BUTRANS [Suspect]
     Indication: BACK PAIN

REACTIONS (4)
  - Application site burn [Not Recovered/Not Resolved]
  - Application site vesicles [Not Recovered/Not Resolved]
  - Product adhesion issue [Unknown]
  - Application site urticaria [Not Recovered/Not Resolved]
